FAERS Safety Report 17116964 (Version 1)
Quarter: 2019Q4

REPORT INFORMATION
  Report Type: Report from Study
  Country: DE (occurrence: DE)
  Receive Date: 20191205
  Receipt Date: 20191205
  Transmission Date: 20200122
  Serious: Yes (Hospitalization, Other)
  Sender: FDA-Public Use
  Company Number: DE-MYLANLABS-2019M1118767

PATIENT
  Age: 65 Year
  Sex: Female
  Weight: 47 kg

DRUGS (3)
  1. KISQALI [Suspect]
     Active Substance: RIBOCICLIB
     Indication: BREAST CANCER METASTATIC
     Dosage: 600 MILLIGRAM, QD (600 MG, QD (1-21))
     Route: 048
     Dates: start: 20180730, end: 20190328
  2. ANASTROZOLE. [Suspect]
     Active Substance: ANASTROZOLE
     Indication: BREAST CANCER METASTATIC
     Dosage: 2.5 MILLIGRAM, QD
     Route: 065
     Dates: start: 20180730
  3. LETROZOLE. [Suspect]
     Active Substance: LETROZOLE
     Indication: BREAST CANCER METASTATIC
     Dosage: 2.5 MILLIGRAM, QD
     Route: 048
     Dates: start: 20180730, end: 20190328

REACTIONS (6)
  - Pyrexia [Unknown]
  - Metabolic alkalosis [Unknown]
  - White blood cell count decreased [Unknown]
  - Bronchitis [Recovered/Resolved]
  - Pneumonia chlamydial [Unknown]
  - Viral infection [Unknown]

NARRATIVE: CASE EVENT DATE: 20190326
